FAERS Safety Report 19006675 (Version 2)
Quarter: 2022Q1

REPORT INFORMATION
  Report Type: Spontaneous
  Country: JP (occurrence: JP)
  Receive Date: 20210315
  Receipt Date: 20220211
  Transmission Date: 20220423
  Serious: Yes (Hospitalization, Other)
  Sender: FDA-Public Use
  Company Number: JP-TAKEDA-2021TJP007991

PATIENT
  Age: 70 Year
  Sex: Male

DRUGS (1)
  1. CABOMETYX [Suspect]
     Active Substance: CABOZANTINIB S-MALATE
     Indication: Clear cell renal cell carcinoma
     Dosage: 60 MG, QD
     Route: 048
     Dates: start: 20210108

REACTIONS (15)
  - Sudden hearing loss [Not Recovered/Not Resolved]
  - Otitis media chronic [Unknown]
  - Retinal detachment [Unknown]
  - Abdominal wall abscess [Unknown]
  - Diverticulum intestinal haemorrhagic [Unknown]
  - Hypothyroidism [Unknown]
  - Tympanic membrane perforation [Unknown]
  - Tympanosclerosis [Unknown]
  - Infected neoplasm [Unknown]
  - Epistaxis [Unknown]
  - Diarrhoea [Unknown]
  - Taste disorder [Unknown]
  - Palmar-plantar erythrodysaesthesia syndrome [Unknown]
  - Hypertension [Unknown]
  - Proteinuria [Unknown]

NARRATIVE: CASE EVENT DATE: 20210305
